FAERS Safety Report 4498970-9 (Version None)
Quarter: 2004Q4

REPORT INFORMATION
  Report Type: 
  Country: None (occurrence: None)
  Receive Date: 20041108
  Receipt Date: 20041022
  Transmission Date: 20050328
  Serious: Yes (Hospitalization)
  Sender: FDA-Public Use
  Company Number: 2004AC00625

PATIENT
  Age: 37 Year
  Sex: Male

DRUGS (2)
  1. QUETIAPINE [Suspect]
     Indication: SCHIZOPHRENIA
     Dosage: 200 MG DAILY PO
     Route: 048
     Dates: start: 20040603
  2. LITHIUM CARBONATE [Concomitant]

REACTIONS (2)
  - CONDITION AGGRAVATED [None]
  - SCHIZOPHRENIA [None]
